FAERS Safety Report 5573026-2 (Version None)
Quarter: 2007Q4

REPORT INFORMATION
  Report Type: 
  Country: None (occurrence: None)
  Receive Date: 20071224
  Receipt Date: 20071211
  Transmission Date: 20080405
  Serious: Yes (Disabling)
  Sender: FDA-Public Use
  Company Number: FR-AVENTIS-200714008FR

PATIENT
  Age: 57 Year
  Sex: Male

DRUGS (9)
  1. LASILIX RETARD [Suspect]
     Route: 048
     Dates: start: 19900101
  2. CARDENSIEL [Suspect]
     Indication: TACHYARRHYTHMIA
     Route: 048
     Dates: start: 20061201
  3. DIGOXIN [Suspect]
     Route: 048
     Dates: start: 19900101
  4. SINTROM [Suspect]
     Route: 048
     Dates: start: 19950101
  5. LEVOTHYROX [Suspect]
     Route: 048
     Dates: start: 20010101
  6. ALLOPURINOL [Suspect]
     Route: 048
     Dates: start: 19850101
  7. FLUVOXAMINE MALEATE [Suspect]
     Route: 048
     Dates: start: 19960101
  8. PANTESTONE [Suspect]
     Route: 048
     Dates: start: 19980101, end: 20070101
  9. OMEPRAZOLE [Suspect]
     Route: 048
     Dates: start: 20000101

REACTIONS (2)
  - SOFT TISSUE INJURY [None]
  - TENDON RUPTURE [None]
